FAERS Safety Report 4559304-4 (Version None)
Quarter: 2005Q1

REPORT INFORMATION
  Report Type: 
  Country: None (occurrence: None)
  Receive Date: 20050124
  Receipt Date: 20050117
  Transmission Date: 20050727
  Serious: Yes (Hospitalization)
  Sender: FDA-Public Use
  Company Number: US-JNJFOC-20050103923

PATIENT
  Age: 88 Year
  Sex: Male

DRUGS (4)
  1. DURAGESIC [Suspect]
     Route: 062
     Dates: start: 20040527, end: 20040530
  2. PREDNISONE [Concomitant]
     Indication: DRUG USE FOR UNKNOWN INDICATION
     Route: 049
  3. THEOPHYLINE [Concomitant]
     Indication: ASTHMA
     Route: 049
  4. DILANTIN [Concomitant]
     Route: 049

REACTIONS (1)
  - CONVULSION [None]
